FAERS Safety Report 19705716 (Version 1)
Quarter: 2021Q3

REPORT INFORMATION
  Report Type: Spontaneous
  Country: NL (occurrence: NL)
  Receive Date: 20210817
  Receipt Date: 20210817
  Transmission Date: 20211014
  Serious: Yes (Other)
  Sender: FDA-Public Use
  Company Number: NL-AUROBINDO-AUR-APL-2021-034741

PATIENT
  Sex: Male
  Weight: 3 kg

DRUGS (2)
  1. QUETIAPINE FILM?COATED TABLETS 25MG [Suspect]
     Active Substance: QUETIAPINE
     Indication: PSYCHOTIC DISORDER
     Dosage: 25 MILLIGRAM, ONCE A DAY (1X PER DAY 1 PIECE)
     Route: 048
  2. CLOMIPRAMINE [Concomitant]
     Active Substance: CLOMIPRAMINE
     Indication: PRODUCT USED FOR UNKNOWN INDICATION
     Dosage: UNK
     Route: 065

REACTIONS (3)
  - Neutropenia neonatal [Recovered/Resolved]
  - Maternal exposure during pregnancy [Unknown]
  - Leukopenia neonatal [Recovered/Resolved]

NARRATIVE: CASE EVENT DATE: 20210717
